FAERS Safety Report 7099856-6 (Version None)
Quarter: 2010Q4

REPORT INFORMATION
  Report Type: 
  Country: None (occurrence: None)
  Receive Date: 20101112
  Receipt Date: 20101102
  Transmission Date: 20110411
  Serious: Yes (Other)
  Sender: FDA-Public Use
  Company Number: PHHY2010JP75033

PATIENT
  Age: 70 Year
  Sex: Female

DRUGS (3)
  1. GLEEVEC [Suspect]
     Indication: CHRONIC MYELOID LEUKAEMIA
     Dosage: 200 MG/DAY
     Route: 048
  2. GLEEVEC [Suspect]
     Dosage: 300 MG/DAY
     Route: 048
  3. AROTINOLOL HYDROCHLORIDE [Concomitant]
     Route: 048

REACTIONS (1)
  - ELECTROCARDIOGRAM QT PROLONGED [None]
